FAERS Safety Report 16018835 (Version 1)
Quarter: 2019Q1

REPORT INFORMATION
  Report Type: Spontaneous
  Country: US (occurrence: US)
  Receive Date: 20190228
  Receipt Date: 20190228
  Transmission Date: 20190418
  Serious: No
  Sender: FDA-Public Use
  Company Number: US-SA-2019SA053548

PATIENT
  Age: 46 Year
  Sex: Female

DRUGS (1)
  1. DUPIXENT [Suspect]
     Active Substance: DUPILUMAB
     Dosage: UNK
     Dates: start: 20180926

REACTIONS (4)
  - Paraesthesia [Unknown]
  - Unevaluable event [Unknown]
  - Skin discolouration [Unknown]
  - Feeling cold [Unknown]

NARRATIVE: CASE EVENT DATE: 20190204
